FAERS Safety Report 21645184 (Version 1)
Quarter: 2022Q4

REPORT INFORMATION
  Report Type: Spontaneous
  Country: SE (occurrence: SE)
  Receive Date: 20221126
  Receipt Date: 20221126
  Transmission Date: 20230113
  Serious: Yes (Other)
  Sender: FDA-Public Use
  Company Number: SE-TEVA-2022-SE-2828618

PATIENT
  Age: 25 Year
  Sex: Male

DRUGS (1)
  1. VENLAFAXINE [Suspect]
     Active Substance: VENLAFAXINE HYDROCHLORIDE
     Indication: Product used for unknown indication
     Route: 048
     Dates: end: 20220717

REACTIONS (1)
  - Mental impairment [Unknown]

NARRATIVE: CASE EVENT DATE: 20201120
